FAERS Safety Report 7519454-7 (Version None)
Quarter: 2011Q2

REPORT INFORMATION
  Report Type: 
  Country: None (occurrence: None)
  Receive Date: 20110602
  Receipt Date: 20110524
  Transmission Date: 20111010
  Serious: Yes (Hospitalization, Disabling)
  Sender: FDA-Public Use
  Company Number: US-B.I. PHARMACEUTICALS,INC./RIDGEFIELD-2011-BP-05297BP

PATIENT
  Sex: Male
  Weight: 81.65 kg

DRUGS (28)
  1. NEURONTIN [Concomitant]
     Dosage: 600 MG
  2. CYMBALTA [Concomitant]
     Indication: DEPRESSION
     Dosage: 60 MG
     Route: 048
  3. LASIX [Concomitant]
     Indication: DIURETIC THERAPY
     Dosage: 40 MG
     Route: 048
  4. DIGOXIN [Concomitant]
     Indication: CARDIAC DISORDER
     Dosage: 0.125 MG
     Route: 048
  5. GLIPIZIDE [Concomitant]
     Indication: BLOOD GLUCOSE ABNORMAL
     Dosage: 5 MG
     Route: 048
     Dates: start: 20110201
  6. ASPIRIN [Concomitant]
     Dosage: 81 MG
  7. LIPITOR [Concomitant]
     Indication: BLOOD CHOLESTEROL INCREASED
     Dosage: 40 MG
     Route: 048
  8. ZOCOR [Concomitant]
     Dosage: 40 MG
  9. ALDACTONE [Concomitant]
     Dosage: 12.5 MG
  10. HYDROCODONE BITARTRATE AND ACETAMINOPHEN [Suspect]
     Indication: ARTHRITIS
     Route: 048
     Dates: start: 20110201
  11. PAROXETINE HCL [Concomitant]
     Dosage: 10 MG
     Route: 048
  12. CARVIDOLOL [Concomitant]
     Indication: CARDIAC DISORDER
     Dosage: 6.25 MG
     Route: 048
  13. PREDNISONE [Concomitant]
     Indication: INFECTION
     Route: 048
     Dates: start: 20010101
  14. PEPCID [Concomitant]
     Dosage: 40 MG
  15. GABAPENTIN [Concomitant]
     Indication: ARTHRITIS
     Route: 048
  16. OXAZEPAM [Concomitant]
     Dates: start: 20110204
  17. TRAMADOL HCL [Concomitant]
  18. PRADAXA [Suspect]
     Indication: ANTICOAGULANT THERAPY
     Dosage: 300 MG
     Route: 048
     Dates: start: 20110204, end: 20110401
  19. TRAZODONE HCL [Concomitant]
     Dosage: 50 MG
  20. POTASSIUM CHLORIDE [Concomitant]
     Dosage: 20 MEQ
  21. SEPTRA DS [Concomitant]
  22. PRADAXA [Suspect]
     Indication: ATRIAL FIBRILLATION
  23. AMITRIPTYLENE [Concomitant]
     Route: 048
  24. LEVOTHYROXINE SODIUM [Concomitant]
     Indication: THYROID DISORDER
     Dosage: 175 MCG
     Route: 048
  25. ALBUTEROL SULFATE [Concomitant]
  26. PRADAXA [Suspect]
     Indication: CARDIAC DISORDER
  27. DOXYCYCLINE [Concomitant]
     Indication: PNEUMONIA
     Dosage: 200 MG
     Route: 048
  28. PRILOSEC [Concomitant]
     Dosage: 20 MG

REACTIONS (3)
  - FALL [None]
  - HAEMORRHAGE [None]
  - SOMNOLENCE [None]
